FAERS Safety Report 8141990-3 (Version None)
Quarter: 2012Q1

REPORT INFORMATION
  Report Type: 
  Country: None (occurrence: None)
  Receive Date: 20120216
  Receipt Date: 20120213
  Transmission Date: 20120608
  Serious: Yes (Hospitalization)
  Sender: FDA-Public Use
  Company Number: IE-PFIZER INC-2012038145

PATIENT
  Age: 47 Year
  Sex: Female

DRUGS (6)
  1. LIPITOR [Concomitant]
     Indication: BLOOD CHOLESTEROL INCREASED
     Dosage: UNK
     Route: 048
     Dates: start: 20060101, end: 20100101
  2. ACETYLSALICYLIC ACID [Concomitant]
     Dosage: 75 MG, UNK
     Route: 048
     Dates: end: 20100101
  3. IBUPROFEN [Concomitant]
     Indication: PAIN
     Dosage: UNK
     Route: 048
     Dates: end: 20100101
  4. DOSTINEX [Suspect]
     Indication: HYPERPROLACTINAEMIA
     Dosage: 0.25 MG, 2X/WEEK
     Route: 048
     Dates: start: 20101001
  5. ESOMEPRAZOLE [Concomitant]
     Dosage: UNK
     Route: 048
     Dates: end: 20100101
  6. DOSTINEX [Suspect]
     Dosage: 0.5 MG, 2X/WEEK
     Route: 048
     Dates: end: 20110501

REACTIONS (1)
  - HEPATITIS [None]
